FAERS Safety Report 19741733 (Version 1)
Quarter: 2021Q3

REPORT INFORMATION
  Report Type: Report from Study
  Country: CA (occurrence: CA)
  Receive Date: 20210824
  Receipt Date: 20210824
  Transmission Date: 20211014
  Serious: Yes (Other)
  Sender: FDA-Public Use
  Company Number: CA-UCBSA-2021038332

PATIENT
  Age: 29 Year
  Sex: Female

DRUGS (4)
  1. CERTOLIZUMAB PEGOL AUTOCLICKS [Suspect]
     Active Substance: CERTOLIZUMAB PEGOL
     Indication: ANKYLOSING SPONDYLITIS
     Dosage: 400 MILLIGRAM, EV 2 WEEKS(QOW)
     Route: 058
     Dates: start: 20201209
  2. CERTOLIZUMAB PEGOL AUTOCLICKS [Suspect]
     Active Substance: CERTOLIZUMAB PEGOL
     Dosage: 200 MILLIGRAM, EV 2 WEEKS(QOW)
     Route: 058
  3. GINGER [ZINGIBER OFFICINALE RHIZOME] [Concomitant]
     Active Substance: GINGER
     Indication: FOOD POISONING
  4. GRAVOL [Concomitant]
     Active Substance: DIMENHYDRINATE
     Indication: FOOD POISONING

REACTIONS (2)
  - Food poisoning [Recovering/Resolving]
  - Ankylosing spondylitis [Unknown]

NARRATIVE: CASE EVENT DATE: 20210808
